FAERS Safety Report 5527805-8 (Version None)
Quarter: 2007Q4

REPORT INFORMATION
  Report Type: 
  Country: None (occurrence: None)
  Receive Date: 20071128
  Receipt Date: 20071121
  Transmission Date: 20080405
  Serious: Yes (Hospitalization)
  Sender: FDA-Public Use
  Company Number: A0696356A

PATIENT
  Age: 77 Year
  Sex: Male

DRUGS (1)
  1. AROPAX [Suspect]
     Indication: DEPRESSION
     Dosage: 20MG PER DAY
     Route: 048

REACTIONS (1)
  - PROSTATIC DISORDER [None]
